FAERS Safety Report 16712612 (Version 1)
Quarter: 2019Q3

REPORT INFORMATION
  Report Type: Spontaneous
  Country: DE (occurrence: DE)
  Receive Date: 20190816
  Receipt Date: 20190816
  Transmission Date: 20191004
  Serious: Yes (Hospitalization, Other)
  Sender: FDA-Public Use
  Company Number: PHHY2019DE188558

PATIENT
  Age: 80 Year
  Sex: Female

DRUGS (17)
  1. OPICAPONE [Concomitant]
     Active Substance: OPICAPONE
     Indication: PRODUCT USED FOR UNKNOWN INDICATION
     Dosage: 50 MG, QD (50 MG, 0-0-0-1 ABGESETZT AM 15.03.2018)
     Route: 065
     Dates: end: 20180315
  2. ROTIGOTINE [Concomitant]
     Active Substance: ROTIGOTINE
     Indication: PRODUCT USED FOR UNKNOWN INDICATION
     Dosage: 2 MG, QD (2 MG / TAG, 1-0-0-0 NACH EINER WOCHE 2-0-0-0, PFLASTER TRANSDERMAL)
     Route: 062
  3. NATRIUMCHLORID NORIDEM [Concomitant]
     Active Substance: SODIUM CHLORIDE
     Indication: PRODUCT USED FOR UNKNOWN INDICATION
     Dosage: 1000 MG, Q8H (1000 MG, 1-1-1-0)
     Route: 065
  4. IBUPROFEN. [Suspect]
     Active Substance: IBUPROFEN
     Indication: PRODUCT USED FOR UNKNOWN INDICATION
     Dosage: 400 MG, QD (400 MG, 1-0-0-0)
     Route: 065
  5. COLECALCIFEROL [Concomitant]
     Active Substance: CHOLECALCIFEROL
     Indication: PRODUCT USED FOR UNKNOWN INDICATION
     Dosage: 1 DF, QD (1000 IE, 1-0-0-0)
     Route: 065
  6. LEVOTHYROXINE SODIUM. [Concomitant]
     Active Substance: LEVOTHYROXINE SODIUM
     Indication: PRODUCT USED FOR UNKNOWN INDICATION
     Dosage: 75 UG, QD (75 ?G, 1-0-0-0)
     Route: 065
  7. LEVODOPA/BENSERAZIDE [Concomitant]
     Active Substance: BENSERAZIDE\LEVODOPA
     Indication: PRODUCT USED FOR UNKNOWN INDICATION
     Dosage: 1 DF, Q8H (NK MG, 1-0-0-0)
     Route: 065
  8. MACROGOL [Concomitant]
     Active Substance: POLYETHYLENE GLYCOLS
     Indication: PRODUCT USED FOR UNKNOWN INDICATION
     Dosage: UNK MG, QD (NK MG, 1-0-0-0
     Route: 065
  9. RAMIPRIL. [Concomitant]
     Active Substance: RAMIPRIL
     Indication: PRODUCT USED FOR UNKNOWN INDICATION
     Dosage: 2.5 MG, Q12H (2.5 MG, 1-0-1-0)
     Route: 065
  10. LEVODOPA/CARBIDOPA [Concomitant]
     Active Substance: CARBIDOPA\LEVODOPA
     Dosage: 1 DF, QD (200|50 MG, 0-0-0-1)
     Route: 065
  11. SERTRALINE [Suspect]
     Active Substance: SERTRALINE HYDROCHLORIDE
     Indication: PRODUCT USED FOR UNKNOWN INDICATION
     Dosage: 50 MG, QD (50 MG, 1-0-0-0)
     Route: 065
  12. LEVODOPA/CARBIDOPA [Concomitant]
     Active Substance: CARBIDOPA\LEVODOPA
     Indication: PRODUCT USED FOR UNKNOWN INDICATION
     Dosage: 4 DF, QD (100|25 MG, 1-1-1-1 ZU DEN UHRZEITEN 7:00, 11:00, 15:00, 19:00)
     Route: 065
  13. ROPINIROL [Concomitant]
     Active Substance: ROPINIROLE
     Indication: PRODUCT USED FOR UNKNOWN INDICATION
     Dosage: 8 MG, QD (8 MG, 1-0-0-0)
     Route: 065
  14. ROPINIROL [Concomitant]
     Active Substance: ROPINIROLE
     Dosage: 12 MG, QD (8 MG, 1-0-0.5-0)
     Route: 065
  15. ROPINIROL [Concomitant]
     Active Substance: ROPINIROLE
     Dosage: 4 MG, QD (4 MG, 0-0-1-0)
     Route: 065
  16. LEVODOPA/BENSERAZIDE [Concomitant]
     Active Substance: BENSERAZIDE\LEVODOPA
     Dosage: 1 DF, QD (1-0-0-0)
     Route: 065
  17. PANTOPRAZOL [Concomitant]
     Active Substance: PANTOPRAZOLE SODIUM
     Indication: PRODUCT USED FOR UNKNOWN INDICATION
     Dosage: 40 MG, QD (40 MG, 1-0-0-0)
     Route: 065

REACTIONS (3)
  - Product prescribing error [Unknown]
  - Haematochezia [Unknown]
  - Abdominal pain lower [Unknown]
